FAERS Safety Report 25277935 (Version 2)
Quarter: 2025Q2

REPORT INFORMATION
  Report Type: Spontaneous
  Country: US (occurrence: US)
  Receive Date: 20250507
  Receipt Date: 20250509
  Transmission Date: 20250716
  Serious: Yes (Life-Threatening, Hospitalization, Other)
  Sender: PFIZER
  Company Number: US-MLMSERVICE-20250428-PI490598-00072-1

PATIENT
  Age: 18 Year
  Sex: Female
  Weight: 53.5 kg

DRUGS (1)
  1. BUPIVACAINE HYDROCHLORIDE [Suspect]
     Active Substance: BUPIVACAINE HYDROCHLORIDE
     Indication: Local anaesthesia
     Route: 053

REACTIONS (2)
  - Local anaesthetic systemic toxicity [Recovered/Resolved]
  - Seizure [Recovered/Resolved]
